FAERS Safety Report 9599184 (Version 1)
Quarter: 2013Q4

REPORT INFORMATION
  Report Type: Spontaneous
  Country: US (occurrence: US)
  Receive Date: 20131004
  Receipt Date: 20131004
  Transmission Date: 20140711
  Serious: No
  Sender: FDA-Public Use
  Company Number: US-AMGEN-USASP2013027605

PATIENT
  Age: 57 Year
  Sex: Female
  Weight: 72.56 kg

DRUGS (5)
  1. ENBREL [Suspect]
     Indication: PRODUCT USED FOR UNKNOWN INDICATION
     Dosage: 50 MG, QWK
     Route: 058
  2. EFFEXOR [Concomitant]
     Dosage: 50 MG, UNK
     Route: 048
  3. ZYRTEC [Concomitant]
     Dosage: 10 MG, UNK
     Route: 048
  4. IBUPROFEN [Concomitant]
     Dosage: 200 MG, UNK
     Route: 048
  5. CALCIUM [Concomitant]
     Dosage: 500 UNK, UNK
     Route: 048

REACTIONS (1)
  - Drug ineffective [Unknown]
